FAERS Safety Report 6105896-3 (Version None)
Quarter: 2009Q1

REPORT INFORMATION
  Report Type: 
  Country: None (occurrence: None)
  Receive Date: 20090306
  Receipt Date: 20090306
  Transmission Date: 20090719
  Serious: No
  Sender: FDA-Public Use
  Company Number: None

PATIENT
  Age: 70 Year
  Sex: Female
  Weight: 91.6266 kg

DRUGS (1)
  1. METFORMIN HCL [Suspect]
     Indication: DIABETES MELLITUS
     Dosage: 1 TAB 2 X DAY ORAL
     Route: 048
     Dates: start: 20080601, end: 20081001

REACTIONS (4)
  - DIARRHOEA [None]
  - HAEMORRHOIDS [None]
  - PAIN [None]
  - PROCTALGIA [None]
